FAERS Safety Report 14782516 (Version 1)
Quarter: 2018Q2

REPORT INFORMATION
  Report Type: Spontaneous
  Country: US (occurrence: US)
  Receive Date: 20180420
  Receipt Date: 20180420
  Transmission Date: 20180711
  Serious: No
  Sender: FDA-Public Use
  Company Number: US-PFIZER INC-2018162959

PATIENT
  Age: 61 Year
  Sex: Female

DRUGS (2)
  1. EMBEDA [Suspect]
     Active Substance: MORPHINE SULFATE\NALTREXONE HYDROCHLORIDE
     Dosage: 20 MG, 2X/DAY
     Route: 048
     Dates: start: 201605
  2. EMBEDA [Suspect]
     Active Substance: MORPHINE SULFATE\NALTREXONE HYDROCHLORIDE
     Dosage: 50 MG, 1X/DAY
     Route: 048

REACTIONS (1)
  - Pain [Recovering/Resolving]
